FAERS Safety Report 4821325-1 (Version None)
Quarter: 2005Q4

REPORT INFORMATION
  Report Type: 
  Country: None (occurrence: None)
  Receive Date: 20051107
  Receipt Date: 20050819
  Transmission Date: 20060501
  Serious: No
  Sender: FDA-Public Use
  Company Number: US-GLAXOSMITHKLINE-A0570947A

PATIENT
  Age: 65 Year
  Sex: Male

DRUGS (6)
  1. AVANDAMET [Suspect]
     Dosage: 500MG TWICE PER DAY
     Route: 048
  2. LIPITOR [Concomitant]
  3. ACIPHEX [Concomitant]
  4. MICARDIS [Concomitant]
  5. TOPROL-XL [Concomitant]
  6. ASPIRIN [Concomitant]

REACTIONS (1)
  - DRUG INEFFECTIVE [None]
